FAERS Safety Report 17007918 (Version 2)
Quarter: 2019Q4

REPORT INFORMATION
  Report Type: Spontaneous
  Country: US (occurrence: US)
  Receive Date: 20191108
  Receipt Date: 20191125
  Transmission Date: 20200122
  Serious: Yes (Hospitalization, Disabling, Congenital Anomaly, Other)
  Sender: FDA-Public Use
  Company Number: US-SA-2019SA305011

PATIENT
  Age: 1 Day
  Sex: Female

DRUGS (1)
  1. CLOMID [Suspect]
     Active Substance: CLOMIPHENE CITRATE
     Indication: FOETAL EXPOSURE DURING PREGNANCY
     Route: 064

REACTIONS (22)
  - Dermoid cyst [Unknown]
  - Cognitive disorder [Not Recovered/Not Resolved]
  - Loss of personal independence in daily activities [Unknown]
  - Dacryostenosis congenital [Unknown]
  - Congenital genitourinary abnormality [Not Recovered/Not Resolved]
  - Oculoauriculovertebral dysplasia [Unknown]
  - Vesicoureteric reflux [Not Recovered/Not Resolved]
  - Polyp [Recovered/Resolved]
  - Chronic kidney disease [Not Recovered/Not Resolved]
  - Neurogenic bowel [Unknown]
  - Genitalia external ambiguous [Unknown]
  - Bladder agenesis [Not Recovered/Not Resolved]
  - Neurogenic bladder [Not Recovered/Not Resolved]
  - Vaginal disorder [Not Recovered/Not Resolved]
  - Haematuria [Unknown]
  - Hypertension [Not Recovered/Not Resolved]
  - Fatigue [Unknown]
  - VACTERL syndrome [Not Recovered/Not Resolved]
  - Foetal exposure during pregnancy [Not Recovered/Not Resolved]
  - Kidney fibrosis [Not Recovered/Not Resolved]
  - Urinary tract malformation [Unknown]
  - Kidney small [Unknown]

NARRATIVE: CASE EVENT DATE: 20001113
